FAERS Safety Report 7880664-0 (Version None)
Quarter: 2011Q4

REPORT INFORMATION
  Report Type: 
  Country: None (occurrence: None)
  Receive Date: 20111101
  Receipt Date: 20100929
  Transmission Date: 20120403
  Serious: No
  Sender: FDA-Public Use
  Company Number: US-BAYER-201035317NA

PATIENT
  Sex: Female

DRUGS (1)
  1. AVELOX [Suspect]
     Route: 042

REACTIONS (1)
  - RASH [None]
